FAERS Safety Report 7089493-1 (Version None)
Quarter: 2010Q4

REPORT INFORMATION
  Report Type: 
  Country: None (occurrence: None)
  Receive Date: 20101108
  Receipt Date: 20101102
  Transmission Date: 20110411
  Serious: Yes (Life-Threatening, Disabling, Other)
  Sender: FDA-Public Use
  Company Number: US-BAYER-201036669NA

PATIENT
  Age: 61 Year
  Sex: Female

DRUGS (2)
  1. AVELOX [Suspect]
     Indication: COUGH
     Dosage: TOTAL DAILY DOSE: 400 MG  UNIT DOSE: 400 MG
     Route: 048
     Dates: start: 20101007, end: 20101007
  2. MAXZIDE [Concomitant]

REACTIONS (8)
  - ANAPHYLACTIC REACTION [None]
  - DYSPNOEA [None]
  - FEELING HOT [None]
  - GENERALISED ERYTHEMA [None]
  - NAUSEA [None]
  - OEDEMA MOUTH [None]
  - OEDEMA PERIPHERAL [None]
  - VISION BLURRED [None]
